FAERS Safety Report 4774723-9 (Version None)
Quarter: 2005Q3

REPORT INFORMATION
  Report Type: 
  Country: None (occurrence: None)
  Receive Date: 20050921
  Receipt Date: 20050915
  Transmission Date: 20060218
  Serious: Yes (Other)
  Sender: FDA-Public Use
  Company Number: CA-GLAXOSMITHKLINE-A0574911A

PATIENT
  Age: 36 Year
  Sex: Female

DRUGS (2)
  1. WELLBUTRIN SR [Suspect]
     Indication: DRUG USE FOR UNKNOWN INDICATION
  2. TYLENOL [Concomitant]

REACTIONS (10)
  - AGGRESSION [None]
  - AGITATION [None]
  - BRUXISM [None]
  - CRYING [None]
  - DEPERSONALISATION [None]
  - FEAR [None]
  - HYPERACUSIS [None]
  - IRRITABILITY [None]
  - PALPITATIONS [None]
  - PHARYNGEAL OEDEMA [None]
